FAERS Safety Report 6464910-6 (Version None)
Quarter: 2009Q4

REPORT INFORMATION
  Report Type: 
  Country: None (occurrence: None)
  Receive Date: 20091201
  Receipt Date: 20060731
  Transmission Date: 20100525
  Serious: Yes (Hospitalization)
  Sender: FDA-Public Use
  Company Number: B0608221A

PATIENT
  Age: 12 Year
  Sex: Female

DRUGS (2)
  1. XYZAL [Suspect]
  2. SERETIDE [Suspect]

REACTIONS (2)
  - MUSCULAR WEAKNESS [None]
  - SYNCOPE [None]
